FAERS Safety Report 20693693 (Version 1)
Quarter: 2022Q2

REPORT INFORMATION
  Report Type: Report from Study
  Country: CA (occurrence: CA)
  Receive Date: 20220411
  Receipt Date: 20220411
  Transmission Date: 20220721
  Serious: Yes (Other)
  Sender: FDA-Public Use
  Company Number: CA-JNJFOC-20211131961

PATIENT
  Age: 6 Year
  Sex: Female

DRUGS (2)
  1. REMICADE [Suspect]
     Active Substance: INFLIXIMAB
     Indication: Crohn^s disease
     Dosage: ADDITIONAL THERAPY START DATE- 20-OCT-2020
     Route: 042
     Dates: start: 20201016
  2. REMICADE [Suspect]
     Active Substance: INFLIXIMAB
     Dosage: INCREASED DOSE, 10 MG/KG
     Route: 042
     Dates: start: 20220405

REACTIONS (4)
  - Crohn^s disease [Unknown]
  - Incorrect drug administration rate [Unknown]
  - Product use issue [Unknown]
  - Off label use [Unknown]

NARRATIVE: CASE EVENT DATE: 20201016
